FAERS Safety Report 7874981-8 (Version None)
Quarter: 2011Q4

REPORT INFORMATION
  Report Type: 
  Country: None (occurrence: None)
  Receive Date: 20111031
  Receipt Date: 20100406
  Transmission Date: 20120403
  Serious: No
  Sender: FDA-Public Use
  Company Number: US-BAYER-201019210NA

PATIENT
  Age: 53 Year
  Sex: Female

DRUGS (6)
  1. METFORMIN HCL [Concomitant]
  2. ZOLOFT [Concomitant]
  3. AVELOX [Suspect]
     Indication: INFECTION
  4. GLIPIZIDE [Concomitant]
  5. ATIVAN [Concomitant]
  6. SYNTHROID [Concomitant]

REACTIONS (2)
  - HYPOAESTHESIA ORAL [None]
  - DYSPHONIA [None]
